FAERS Safety Report 16770295 (Version 2)
Quarter: 2019Q3

REPORT INFORMATION
  Report Type: Spontaneous
  Country: IT (occurrence: IT)
  Receive Date: 20190904
  Receipt Date: 20190904
  Transmission Date: 20191005
  Serious: Yes (Other)
  Sender: FDA-Public Use
  Company Number: IT-AUROBINDO-AUR-APL-2017-09362

PATIENT
  Age: 3 Year
  Sex: Male

DRUGS (1)
  1. IBUPROFEN (UNKNOWN) [Suspect]
     Active Substance: IBUPROFEN
     Indication: PRODUCT USED FOR UNKNOWN INDICATION
     Dosage: 10 MG/KG, TID
     Route: 048

REACTIONS (4)
  - Obstruction gastric [Recovered/Resolved]
  - Gastritis haemorrhagic [Recovered/Resolved]
  - Prepyloric stenosis [Recovered/Resolved]
  - Gastric ulcer [Recovered/Resolved]
